FAERS Safety Report 9224946 (Version 2)
Quarter: 2013Q2

REPORT INFORMATION
  Report Type: Spontaneous
  Country: US (occurrence: US)
  Receive Date: 20130411
  Receipt Date: 20130529
  Transmission Date: 20140414
  Serious: Yes (Hospitalization, Other)
  Sender: FDA-Public Use
  Company Number: US-PFIZER INC-2013114811

PATIENT
  Age: 72 Year
  Sex: Female
  Weight: 56.24 kg

DRUGS (7)
  1. LYRICA [Suspect]
     Indication: NEURALGIA
     Dosage: 75 MG, 2X/DAY
  2. MORPHINE SULFATE [Suspect]
     Dosage: UNK
     Dates: start: 2013
  3. LEVEMIR [Concomitant]
     Indication: DIABETES MELLITUS
     Dosage: 2 OR 6 IU
  4. TRAMADOL [Concomitant]
     Indication: ARTHRITIS
     Dosage: 15 MG, UNK
  5. LEVOTHYROXINE [Concomitant]
     Indication: THYROID DISORDER
     Dosage: 125 MG DAILY
  6. COUMADIN [Concomitant]
     Dosage: UNK
  7. NORVASC [Concomitant]
     Dosage: UNK

REACTIONS (4)
  - Pneumonia [Recovered/Resolved]
  - Hallucination [Recovered/Resolved]
  - Influenza [Recovered/Resolved]
  - Overdose [Unknown]
